FAERS Safety Report 8601142-7 (Version None)
Quarter: 2012Q3

REPORT INFORMATION
  Report Type: 
  Country: None (occurrence: None)
  Receive Date: 20120817
  Receipt Date: 20120813
  Transmission Date: 20120928
  Serious: Yes (Other)
  Sender: FDA-Public Use
  Company Number: PHEH2011US01002

PATIENT
  Sex: Female

DRUGS (29)
  1. DOXEPIN [Concomitant]
  2. PROTONIX [Concomitant]
  3. NORFLEX [Concomitant]
  4. SPIRONOLACTONE [Concomitant]
  5. BACLOFEN [Concomitant]
  6. OMEPRAZOLE [Concomitant]
  7. POTASSIUM CHLORIDE [Concomitant]
  8. METHOCARBAMOL [Concomitant]
  9. FOLIC ACID [Concomitant]
  10. TOPIRAMATE [Concomitant]
  11. PROAIR HFA [Concomitant]
  12. KLONOPIN [Concomitant]
  13. LASIX [Concomitant]
  14. LYRICA [Concomitant]
  15. POTASSIUM [Concomitant]
  16. RAPAFLO [Concomitant]
  17. RELPAX [Concomitant]
  18. OXYCODONE HCL [Concomitant]
  19. NORTRIPTYLINE [Concomitant]
  20. ARICEPT [Concomitant]
  21. GILENYA [Suspect]
     Indication: MULTIPLE SCLEROSIS
     Dosage: 10 MG, QD
     Route: 048
     Dates: start: 20101001
  22. ZOLPIDEM [Concomitant]
  23. FUROSEMIDE [Concomitant]
  24. GILENYA [Suspect]
     Dosage: 0.5 MG, QD
     Route: 048
     Dates: start: 20120217
  25. FAMPRIDINE [Concomitant]
  26. FLUTICASONE PROPIONATE [Concomitant]
  27. ALBUTEROL [Concomitant]
  28. LEVOTHYROXINE SODIUM [Concomitant]
  29. AMBIEN [Concomitant]

REACTIONS (7)
  - LIVER FUNCTION TEST ABNORMAL [None]
  - OVERDOSE [None]
  - LOSS OF CONSCIOUSNESS [None]
  - VISUAL ACUITY REDUCED [None]
  - MEMORY IMPAIRMENT [None]
  - FALL [None]
  - TONGUE BITING [None]
